FAERS Safety Report 7792884-4 (Version None)
Quarter: 2011Q4

REPORT INFORMATION
  Report Type: 
  Country: None (occurrence: None)
  Receive Date: 20111003
  Receipt Date: 20110929
  Transmission Date: 20120403
  Serious: Yes (Hospitalization, Other)
  Sender: FDA-Public Use
  Company Number: SE-ABBOTT-11P-150-0854973-00

PATIENT
  Age: 71 Year
  Sex: Male

DRUGS (16)
  1. METOPROLOL TARTRATE [Concomitant]
     Indication: PRODUCT USED FOR UNKNOWN INDICATION
  2. VENOFER [Concomitant]
     Indication: PRODUCT USED FOR UNKNOWN INDICATION
     Dosage: CONCENTRATE FOR SOLUTION FOR INFUSION
  3. SODIUM POLYSTYRENE SULFONATE [Concomitant]
     Indication: PRODUCT USED FOR UNKNOWN INDICATION
     Dosage: POWDER FOR ORAL/RECTAL SUSPENSION
  4. INNOHEP SOLUTION FOR INJECTION 1000ANTI-XA IE/ML [Concomitant]
     Indication: PRODUCT USED FOR UNKNOWN INDICATION
  5. FUROSEMIDE [Concomitant]
     Indication: PRODUCT USED FOR UNKNOWN INDICATION
  6. PAMOL [Concomitant]
     Indication: PRODUCT USED FOR UNKNOWN INDICATION
  7. RENVELA [Concomitant]
     Indication: PRODUCT USED FOR UNKNOWN INDICATION
  8. FENURIL [Concomitant]
     Indication: PRODUCT USED FOR UNKNOWN INDICATION
  9. WARFARIN SODIUM [Suspect]
     Indication: ATRIAL FIBRILLATION
     Dates: start: 20110801, end: 20110801
  10. ALLOPURINOL [Concomitant]
     Indication: PRODUCT USED FOR UNKNOWN INDICATION
  11. SINEMET [Concomitant]
     Indication: PRODUCT USED FOR UNKNOWN INDICATION
     Dosage: 12.5/50 MG
  12. NATRIUMBIKARBONAT [Concomitant]
     Indication: PRODUCT USED FOR UNKNOWN INDICATION
  13. ZEMPLAR [Suspect]
     Indication: HYPERPARATHYROIDISM
     Route: 042
     Dates: start: 20110615, end: 20110907
  14. NEORECORMON SOLUTION FOR INJECTION, PRE-FILLED SYRINGE 3000 IE [Concomitant]
     Indication: PRODUCT USED FOR UNKNOWN INDICATION
  15. FELODIPINE [Concomitant]
     Indication: PRODUCT USED FOR UNKNOWN INDICATION
  16. ACETAMINOPHEN W/ CODEINE [Concomitant]
     Indication: PRODUCT USED FOR UNKNOWN INDICATION
     Dosage: 500/30 MG

REACTIONS (2)
  - GASTROINTESTINAL HAEMORRHAGE [None]
  - ATRIAL FIBRILLATION [None]
